FAERS Safety Report 4455450-4 (Version None)
Quarter: 2004Q3

REPORT INFORMATION
  Report Type: 
  Country: None (occurrence: None)
  Receive Date: 20040917
  Receipt Date: 20040827
  Transmission Date: 20050211
  Serious: Yes (Hospitalization)
  Sender: FDA-Public Use
  Company Number: JP_040904343

PATIENT
  Age: 58 Year
  Sex: Male
  Weight: 49 kg

DRUGS (2)
  1. HUMALOG [Suspect]
     Indication: DIABETES MELLITUS NON-INSULIN-DEPENDENT
     Dosage: 12 U DAY
     Dates: start: 20030522
  2. HUMULIN N [Concomitant]

REACTIONS (6)
  - BLOOD CORTICOTROPHIN DECREASED [None]
  - DIFFICULTY IN WALKING [None]
  - HYPOGLYCAEMIA [None]
  - HYPONATRAEMIA [None]
  - ISOLATED ADRENOCORTICOTROPIC HORMONE DEFICIENCY [None]
  - MALAISE [None]
